FAERS Safety Report 7582866-X (Version None)
Quarter: 2011Q2

REPORT INFORMATION
  Report Type: 
  Country: None (occurrence: None)
  Receive Date: 20110527
  Receipt Date: 20101122
  Transmission Date: 20111010
  Serious: Yes (Other)
  Sender: FDA-Public Use
  Company Number: US201006000672

PATIENT
  Sex: Male

DRUGS (2)
  1. EXENATIDE 10MCG PEN, DISPOSABLE DEVICE (EXENATIDE PEN (10MCG)) PEN, DI [Concomitant]
  2. BYETTA [Suspect]
     Dosage: 10 UG, 2/D

REACTIONS (1)
  - PANCREATITIS [None]
